FAERS Safety Report 7588400-2 (Version None)
Quarter: 2011Q3

REPORT INFORMATION
  Report Type: 
  Country: None (occurrence: None)
  Receive Date: 20110705
  Receipt Date: 20110620
  Transmission Date: 20111222
  Serious: Yes (Hospitalization)
  Sender: FDA-Public Use
  Company Number: NL-CELGENEUS-114-AB007-11060051

PATIENT
  Sex: Male
  Weight: 65 kg

DRUGS (5)
  1. ABRAXANE [Suspect]
     Dosage: 150 MILLIGRAM/SQ. METER
     Route: 065
     Dates: start: 20110524, end: 20110621
  2. FERROFUMARAAT [Concomitant]
     Dosage: 400 MILLIGRAM
     Route: 048
     Dates: start: 20110201
  3. HYDROCHLOROTHIAZIDE [Suspect]
     Indication: HYPERTENSION
     Dosage: 25 MILLIGRAM
     Route: 048
     Dates: start: 20060101, end: 20110529
  4. OMEPRAZOLE [Concomitant]
     Dosage: 80 MILLIGRAM
     Route: 048
     Dates: start: 20110201, end: 20110529
  5. METFORMIN HCL [Concomitant]
     Dosage: 1000 MILLIGRAM
     Route: 048
     Dates: start: 20050101

REACTIONS (3)
  - HYPOMAGNESAEMIA [None]
  - HYPOKALAEMIA [None]
  - HYPOCALCAEMIA [None]
